FAERS Safety Report 7742791-8 (Version None)
Quarter: 2011Q3

REPORT INFORMATION
  Report Type: 
  Country: None (occurrence: None)
  Receive Date: 20110912
  Receipt Date: 20110901
  Transmission Date: 20111222
  Serious: Yes (Other)
  Sender: FDA-Public Use
  Company Number: CN-JNJFOC-20110901195

PATIENT
  Sex: Female
  Weight: 17.5 kg

DRUGS (4)
  1. PEVISONE [Suspect]
     Indication: BLISTER
     Route: 065
  2. MICONAZOLE [Suspect]
     Route: 061
  3. MICONAZOLE [Suspect]
     Indication: BLISTER
     Dosage: QUANTITY SUFFICIENT
     Route: 061
     Dates: start: 20110830, end: 20110901
  4. UREA CREAM [Suspect]
     Indication: BLISTER
     Dosage: QUANTITY SUFFICIENT
     Route: 061
     Dates: start: 20110830, end: 20110901

REACTIONS (2)
  - BLISTER [None]
  - WRONG DRUG ADMINISTERED [None]
